FAERS Safety Report 9442188 (Version 2)
Quarter: 2013Q4

REPORT INFORMATION
  Report Type: Spontaneous
  Country: IT (occurrence: IT)
  Receive Date: 20130806
  Receipt Date: 20131028
  Transmission Date: 20140711
  Serious: Yes (Other)
  Sender: FDA-Public Use
  Company Number: IT-ROCHE-1256253

PATIENT
  Age: 60 Year
  Sex: Female
  Weight: 47 kg

DRUGS (5)
  1. AVASTIN [Suspect]
     Indication: BREAST CANCER
     Route: 065
     Dates: start: 20130606, end: 20130621
  2. PACLITAXEL [Suspect]
     Indication: BREAST CANCER
     Route: 065
     Dates: start: 20130606, end: 20130621
  3. SOLDESAM [Concomitant]
  4. RANIDIL [Concomitant]
  5. ONDANSETRON HIKMA [Concomitant]

REACTIONS (4)
  - Alopecia [Unknown]
  - Dry mouth [Unknown]
  - Fatigue [Unknown]
  - Sensory loss [Unknown]
